FAERS Safety Report 5222392-6 (Version None)
Quarter: 2007Q1

REPORT INFORMATION
  Report Type: 
  Country: None (occurrence: None)
  Receive Date: 20070124
  Receipt Date: 20070109
  Transmission Date: 20070707
  Serious: Yes (Other)
  Sender: FDA-Public Use
  Company Number: 2007US-05242

PATIENT
  Age: 46 Year
  Sex: Female

DRUGS (2)
  1. ISOTRETINOIN [Suspect]
     Indication: ACNE
     Dosage: 30 MG, QD
     Dates: start: 20061128, end: 20061205
  2. VITAMINS [Concomitant]

REACTIONS (2)
  - DYSPLASTIC NAEVUS SYNDROME [None]
  - VERTIGO [None]
